FAERS Safety Report 24844085 (Version 1)
Quarter: 2025Q1

REPORT INFORMATION
  Report Type: Spontaneous
  Country: US (occurrence: US)
  Receive Date: 20250115
  Receipt Date: 20250115
  Transmission Date: 20250409
  Serious: No
  Sender: SANOFI AVENTIS
  Company Number: US-SA-2025SA011805

PATIENT
  Age: 67 Year

DRUGS (2)
  1. ADMELOG [Suspect]
     Active Substance: INSULIN LISPRO
     Indication: Diabetes mellitus
     Dosage: 100 IU, QD
     Route: 058
  2. ADMELOG [Suspect]
     Active Substance: INSULIN LISPRO
     Indication: Diabetic neuropathy

REACTIONS (1)
  - Off label use [Unknown]
